FAERS Safety Report 4853091-8 (Version None)
Quarter: 2005Q4

REPORT INFORMATION
  Report Type: 
  Country: None (occurrence: None)
  Receive Date: 20051214
  Receipt Date: 20051129
  Transmission Date: 20060501
  Serious: Yes (Death, Other)
  Sender: FDA-Public Use
  Company Number: GB-JNJFOC-20051202320

PATIENT
  Age: 43 Year
  Sex: Male
  Weight: 57 kg

DRUGS (12)
  1. REOPRO [Suspect]
     Indication: ACUTE MYOCARDIAL INFARCTION
     Route: 042
  2. CLOPIDOGREL [Suspect]
  3. CLOPIDOGREL [Suspect]
     Indication: ACUTE MYOCARDIAL INFARCTION
  4. ENOXAPARIN SODIUM [Suspect]
  5. ENOXAPARIN SODIUM [Suspect]
     Indication: ACUTE MYOCARDIAL INFARCTION
  6. ASPIRIN [Suspect]
  7. ASPIRIN [Suspect]
     Indication: ACUTE MYOCARDIAL INFARCTION
  8. BISOPROLOL [Concomitant]
  9. NICORETTE [Concomitant]
     Route: 062
  10. RAMIPRIL [Concomitant]
  11. ATROVASTATIN [Concomitant]
  12. ESCITALOPRAM OXALATE [Concomitant]

REACTIONS (2)
  - CEREBRAL HAEMORRHAGE [None]
  - THROMBOCYTOPENIA [None]
